FAERS Safety Report 4925062-4 (Version None)
Quarter: 2006Q1

REPORT INFORMATION
  Report Type: 
  Country: None (occurrence: None)
  Receive Date: 20060222
  Receipt Date: 20060209
  Transmission Date: 20060701
  Serious: Yes (Other)
  Sender: FDA-Public Use
  Company Number: 222047

PATIENT
  Age: 61 Year
  Sex: Female

DRUGS (1)
  1. HERCEPTIN [Suspect]
     Indication: BREAST CANCER FEMALE
     Dosage: 2 MG/KG, 1/WEEK,
     Dates: start: 20050801

REACTIONS (6)
  - DYSPHAGIA [None]
  - DYSPNOEA EXACERBATED [None]
  - OBSTRUCTIVE AIRWAYS DISORDER [None]
  - STRIDOR [None]
  - VOCAL CORD PARALYSIS [None]
  - WHEEZING [None]
